FAERS Safety Report 17703280 (Version 2)
Quarter: 2020Q2

REPORT INFORMATION
  Report Type: Spontaneous
  Country: DE (occurrence: DE)
  Receive Date: 20200423
  Receipt Date: 20200629
  Transmission Date: 20200714
  Serious: Yes (Other)
  Sender: FDA-Public Use
  Company Number: DE-NOVOPROD-724426

PATIENT
  Age: 16 Year
  Sex: Male
  Weight: 64 kg

DRUGS (1)
  1. NOVORAPID [Suspect]
     Active Substance: INSULIN ASPART
     Indication: TYPE 1 DIABETES MELLITUS
     Dosage: 160 QD
     Route: 058
     Dates: start: 20160831

REACTIONS (2)
  - Diabetic ketoacidosis [Recovered/Resolved]
  - Product leakage [Unknown]

NARRATIVE: CASE EVENT DATE: 20200416
